FAERS Safety Report 23711211 (Version 3)
Quarter: 2024Q2

REPORT INFORMATION
  Report Type: Report from Study
  Country: UY (occurrence: UY)
  Receive Date: 20240405
  Receipt Date: 20240513
  Transmission Date: 20240715
  Serious: Yes (Hospitalization, Other)
  Sender: FDA-Public Use
  Company Number: UY-ABBVIE-5706669

PATIENT
  Sex: Male

DRUGS (3)
  1. RINVOQ [Suspect]
     Active Substance: UPADACITINIB
     Indication: Dermatitis atopic
     Dosage: FORM STRENGTH: 30 MILLIGRAM?LAST ADMIN DATE: 2024
     Route: 048
     Dates: start: 20240307
  2. RINVOQ [Suspect]
     Active Substance: UPADACITINIB
     Indication: Dermatitis atopic
     Dosage: FORM STRENGTH: 15 MILLIGRAM DOSE REDUCED
     Route: 048
     Dates: start: 2024
  3. METHOTREXATE [Suspect]
     Active Substance: METHOTREXATE
     Indication: Product used for unknown indication
     Dosage: UNKNOW
     Route: 065
     Dates: end: 202403

REACTIONS (8)
  - Seizure [Unknown]
  - Loss of consciousness [Unknown]
  - Seizure [Recovered/Resolved]
  - Dry skin [Unknown]
  - Fall [Unknown]
  - Anxiety [Unknown]
  - Mental disorder [Unknown]
  - Erythema [Unknown]

NARRATIVE: CASE EVENT DATE: 20240101
